FAERS Safety Report 8555544 (Version 3)
Quarter: 2012Q4

REPORT INFORMATION
  Report Type: 
  Country: GB (occurrence: GB)
  Receive Date: 20120510
  Receipt Date: 20121227
  Transmission Date: 20130627
  Serious: Yes (Death, Disabling)
  Sender: FDA-Public Use
  Company Number: GB-RANBAXY-2012R1-55993

PATIENT
  Sex: Male
  Weight: 75 kg

DRUGS (2)
  1. SIMVASTATIN [Suspect]
     Indication: HYPERLIPIDAEMIA
     Dosage: 40 mg, qd
     Route: 048
     Dates: start: 2010, end: 20111019
  2. METFORMIN [Concomitant]
     Indication: DIABETES MELLITUS
     Dosage: UNK
     Route: 048
     Dates: start: 2010, end: 20111021

REACTIONS (2)
  - Drug eruption [Recovered/Resolved]
  - Lichenoid keratosis [Recovered/Resolved]
